FAERS Safety Report 8512060-7 (Version None)
Quarter: 2012Q3

REPORT INFORMATION
  Report Type: 
  Country: None (occurrence: None)
  Receive Date: 20120716
  Receipt Date: 20120712
  Transmission Date: 20120928
  Serious: No
  Sender: FDA-Public Use
  Company Number: US-PFIZER INC-2012168854

PATIENT
  Sex: Male
  Weight: 68 kg

DRUGS (2)
  1. LYRICA [Suspect]
     Indication: PAIN IN EXTREMITY
     Dosage: 100 MG, UNK
     Route: 048
     Dates: end: 20120701
  2. KLONOPIN [Concomitant]
     Dosage: UNK

REACTIONS (3)
  - MOVEMENT DISORDER [None]
  - PAIN [None]
  - SLEEP DISORDER [None]
